FAERS Safety Report 16667712 (Version 2)
Quarter: 2019Q3

REPORT INFORMATION
  Report Type: Spontaneous
  Country: US (occurrence: US)
  Receive Date: 20190805
  Receipt Date: 20190812
  Transmission Date: 20191004
  Serious: Yes (Hospitalization, Other)
  Sender: FDA-Public Use
  Company Number: US-PFIZER INC-2019329179

PATIENT
  Age: 59 Year
  Sex: Female

DRUGS (2)
  1. MYCOPHENOLATE MOFETIL. [Suspect]
     Active Substance: MYCOPHENOLATE MOFETIL
     Indication: IMMUNOSUPPRESSANT DRUG THERAPY
     Dosage: UNK
     Dates: start: 2011
  2. TACROLIMUS. [Suspect]
     Active Substance: TACROLIMUS
     Indication: IMMUNOSUPPRESSANT DRUG THERAPY
     Dosage: UNK
     Dates: start: 2011

REACTIONS (8)
  - Duodenal perforation [Recovering/Resolving]
  - Joint tuberculosis [Recovering/Resolving]
  - Mycobacterial infection [Recovering/Resolving]
  - Tuberculosis gastrointestinal [Recovering/Resolving]
  - Mesenteric abscess [Recovering/Resolving]
  - Disseminated tuberculosis [Recovering/Resolving]
  - Osteomyelitis [Recovering/Resolving]
  - Acid fast bacilli infection [Recovering/Resolving]
